FAERS Safety Report 26207766 (Version 1)
Quarter: 2025Q4

REPORT INFORMATION
  Report Type: Spontaneous
  Country: AU (occurrence: AU)
  Receive Date: 20251229
  Receipt Date: 20251229
  Transmission Date: 20260117
  Serious: Yes (Other)
  Sender: MYLAN
  Company Number: AU-MYLANLABS-2025M1108149

PATIENT
  Age: 41 Year
  Sex: Male
  Weight: 92 kg

DRUGS (8)
  1. CLOZARIL [Suspect]
     Active Substance: CLOZAPINE
     Indication: Schizophrenia
     Dosage: 250 MILLIGRAM, PM ( 250MG NOCTE)
     Route: 061
     Dates: start: 20220511
  2. ARIPIPRAZOLE [Concomitant]
     Active Substance: ARIPIPRAZOLE
     Dosage: 10 MILLIGRAM, AM (MORNING)
     Route: 061
  3. ATORVASTATIN [Concomitant]
     Active Substance: ATORVASTATIN
     Dosage: 80 MILLIGRAM, AM (MORNING)
     Route: 061
  4. FENOFIBRATE [Concomitant]
     Active Substance: FENOFIBRATE
     Dosage: 145 MILLIGRAM, AM (MORNING)
     Route: 061
  5. METOPROLOL [Concomitant]
     Active Substance: METOPROLOL
     Dosage: 25 MILLIGRAM, BID (METOPROLOL 50 MG ORAL IR TABLET): 0.5 TAB(S) = 25 MG, TABLET, ORAL, TWICE A DAY)
     Route: 061
  6. OMEGA-3 FATTY ACIDS [Concomitant]
     Active Substance: OMEGA-3 FATTY ACIDS
     Dosage: 2000 MILLIGRAM, BID ((FISH OIL 2,000 MG ORAL CAPSULE): 2 CAP(S) = 4,000 MG, CAPSULE, ORAL, TWICE A DAY)
     Route: 061
  7. VALPROATE [Concomitant]
     Active Substance: VALPROIC ACID
     Dosage: 100 MILLIGRAM, BID (VALPROATE 100 MG TABLET: 1 TAB(S) = 100 MG, TABLET, ORAL, TWICE A DAY)
     Route: 061
  8. VALPROATE [Concomitant]
     Active Substance: VALPROIC ACID
     Dosage: 200 MILLIGRAM, BID (VALPROATE 200 MG EC TABLET: 1 TAB(S)= 200 MG, TABLET, ORAL, TWICE A DAY)
     Route: 061

REACTIONS (4)
  - Cardiomyopathy [Unknown]
  - Global longitudinal strain abnormal [Unknown]
  - Left ventricular dysfunction [Unknown]
  - Treatment noncompliance [Unknown]

NARRATIVE: CASE EVENT DATE: 20250725
